FAERS Safety Report 6633569-7 (Version None)
Quarter: 2010Q1

REPORT INFORMATION
  Report Type: 
  Country: None (occurrence: None)
  Receive Date: 20100312
  Receipt Date: 20100202
  Transmission Date: 20100710
  Serious: No
  Sender: FDA-Public Use
  Company Number: US-ABBOTT-10P-163-0623770-00

PATIENT
  Sex: Male
  Weight: 99.88 kg

DRUGS (9)
  1. ERYTHROMYCIN [Suspect]
     Indication: DRUG USE FOR UNKNOWN INDICATION
  2. LOVAZA [Concomitant]
     Indication: DRUG USE FOR UNKNOWN INDICATION
  3. LIPITOR [Concomitant]
     Indication: DRUG USE FOR UNKNOWN INDICATION
  4. TRIAMTERENE AND HYDROCHLOROTHIAZIDE [Concomitant]
     Indication: MENIERE'S DISEASE
     Dosage: 37.5/25 MG
     Route: 048
  5. XANAX [Concomitant]
     Indication: DRUG USE FOR UNKNOWN INDICATION
  6. DILTIAZEM-ZD [Concomitant]
     Indication: DRUG USE FOR UNKNOWN INDICATION
     Dosage: 180 MG/ER
  7. AMTIX [Concomitant]
     Indication: DRUG USE FOR UNKNOWN INDICATION
  8. TRAZODONE HCL [Concomitant]
     Indication: DRUG USE FOR UNKNOWN INDICATION
  9. VICODINE [Concomitant]
     Indication: DRUG USE FOR UNKNOWN INDICATION

REACTIONS (1)
  - CLOSTRIDIAL INFECTION [None]
